FAERS Safety Report 10163122 (Version 1)
Quarter: 2014Q2

REPORT INFORMATION
  Report Type: Spontaneous
  Country: US (occurrence: US)
  Receive Date: 20140509
  Receipt Date: 20140509
  Transmission Date: 20141212
  Serious: Yes (Hospitalization)
  Sender: FDA-Public Use
  Company Number: US-GLAXOSMITHKLINE-A1071563A

PATIENT
  Age: 61 Year
  Sex: Female

DRUGS (14)
  1. BREO ELLIPTA [Suspect]
     Indication: DYSPNOEA
     Dosage: 1PUFF PER DAY
     Route: 055
     Dates: start: 201402, end: 20140430
  2. PREDNISONE [Concomitant]
  3. ZYRTEC [Concomitant]
  4. ZANTAC [Concomitant]
  5. DOXEPIN [Concomitant]
  6. ATENOLOL [Concomitant]
  7. NORVASC [Concomitant]
  8. MIDODRINE [Concomitant]
  9. METFORMIN [Concomitant]
  10. CLONAZEPAM [Concomitant]
  11. ESTRADIOL [Concomitant]
  12. ATARAX [Concomitant]
  13. BENADRYL [Concomitant]
  14. IMODIUM [Concomitant]

REACTIONS (7)
  - Gastrointestinal haemorrhage [Not Recovered/Not Resolved]
  - Impaired gastric emptying [Not Recovered/Not Resolved]
  - Diarrhoea [Not Recovered/Not Resolved]
  - Irritable bowel syndrome [Not Recovered/Not Resolved]
  - Nonspecific reaction [Not Recovered/Not Resolved]
  - Faeces discoloured [Not Recovered/Not Resolved]
  - Drug intolerance [Not Recovered/Not Resolved]
